FAERS Safety Report 10540662 (Version 2)
Quarter: 2014Q4

REPORT INFORMATION
  Report Type: Spontaneous
  Country: JP (occurrence: JP)
  Receive Date: 20141024
  Receipt Date: 20141028
  Transmission Date: 20150529
  Serious: No
  Sender: FDA-Public Use
  Company Number: JP-PFIZER INC-2014289560

PATIENT
  Sex: Female

DRUGS (5)
  1. LYRICA [Suspect]
     Active Substance: PREGABALIN
     Dosage: UNK AT NIGHT
     Route: 048
  2. LYRICA [Suspect]
     Active Substance: PREGABALIN
     Dosage: 25 MG SINGLE IN THE DAYTIME
     Route: 048
     Dates: start: 20141017, end: 20141017
  3. LYRICA [Suspect]
     Active Substance: PREGABALIN
     Dosage: UNK IN THE DAYTIME
     Route: 048
     Dates: start: 201301
  4. LYRICA [Suspect]
     Active Substance: PREGABALIN
     Dosage: UNK IN THE MORNING
     Route: 048
     Dates: start: 201410
  5. LYRICA [Suspect]
     Active Substance: PREGABALIN
     Dosage: 150 MG SINGLE IN THE DAYTIME
     Route: 048
     Dates: start: 20141015, end: 20141015

REACTIONS (6)
  - Dizziness [Unknown]
  - Decreased appetite [Unknown]
  - Nausea [Unknown]
  - Incorrect dose administered [Unknown]
  - Blood pressure increased [Unknown]
  - Feeling abnormal [Unknown]

NARRATIVE: CASE EVENT DATE: 201410
